FAERS Safety Report 6994105-9 (Version None)
Quarter: 2010Q3

REPORT INFORMATION
  Report Type: 
  Country: None (occurrence: None)
  Receive Date: 20100917
  Receipt Date: 20091006
  Transmission Date: 20110219
  Serious: No
  Sender: FDA-Public Use
  Company Number: US-ASTRAZENECA-2009SE18561

PATIENT
  Age: 35 Year
  Sex: Male

DRUGS (4)
  1. SEROQUEL XR [Suspect]
     Route: 048
  2. ADDERALL 10 [Concomitant]
  3. CYMBALTA [Concomitant]
  4. AMBIEN [Concomitant]

REACTIONS (2)
  - HEART RATE INCREASED [None]
  - PALPITATIONS [None]
